FAERS Safety Report 5707347-7 (Version None)
Quarter: 2008Q2

REPORT INFORMATION
  Report Type: 
  Country: None (occurrence: None)
  Receive Date: 20080416
  Receipt Date: 20080407
  Transmission Date: 20081010
  Serious: Yes (Death, Life-Threatening)
  Sender: FDA-Public Use
  Company Number: DE-AVENTIS-200710306DE

PATIENT
  Age: 75 Year
  Sex: Male
  Weight: 96 kg

DRUGS (25)
  1. CODE UNBROKEN [Suspect]
     Indication: PROPHYLAXIS
     Dosage: DOSE: NOT APPLICABLE
  2. DOCETAXEL [Suspect]
     Route: 042
     Dates: start: 20070202, end: 20070202
  3. CARBOPLATIN [Suspect]
     Route: 042
     Dates: start: 20070202, end: 20070202
  4. ONDANSETRON [Concomitant]
     Indication: CHEMOTHERAPY
     Route: 042
     Dates: start: 20070202, end: 20070202
  5. FORTECORTIN                        /00016001/ [Concomitant]
     Indication: CHEMOTHERAPY
     Route: 042
     Dates: start: 20070202, end: 20070202
  6. CLOPIDOGREL [Concomitant]
     Dosage: DOSE: NOT REPORTED
     Dates: start: 20070101, end: 20070101
  7. ACETYLSALICYLIC ACID SRT [Concomitant]
     Route: 048
     Dates: end: 20070301
  8. ARELIX [Concomitant]
     Dosage: DOSE: 1-1-0
     Route: 048
     Dates: end: 20070301
  9. LASIX INFUSIONSLOESUNG [Concomitant]
     Dosage: DOSE: NOT REPORTED
     Dates: end: 20070301
  10. LASIX INFUSIONSLOESUNG [Concomitant]
     Dosage: DOSE: TOTAL OF 50 ML AT A SPEED OF 4 ML/H; FREQUENCY: CONTINUOUS
     Route: 042
     Dates: start: 20070301, end: 20070301
  11. CONCOR                             /00802602/ [Concomitant]
     Route: 048
     Dates: end: 20070301
  12. ZOCOR [Concomitant]
     Route: 048
     Dates: end: 20070301
  13. NEXIUM [Concomitant]
     Route: 048
     Dates: end: 20070301
  14. NEXIUM [Concomitant]
     Route: 048
     Dates: start: 20080301, end: 20080301
  15. RIOPAN                             /00141701/ [Concomitant]
     Dosage: DOSE: 1-1-1
     Dates: end: 20070319
  16. AVELOX [Concomitant]
     Route: 048
     Dates: end: 20070319
  17. MOVICOL                            /01053601/ [Concomitant]
     Dosage: DOSE: 1-1-1
     Dates: end: 20070301
  18. UNKNOWN DRUG [Concomitant]
     Dosage: DOSE: NOT REPORTED
     Dates: end: 20070319
  19. UNACID                             /00917901/ [Concomitant]
     Dosage: DOSE: 1-1-1
     Route: 042
     Dates: start: 20070316, end: 20070301
  20. ENOXAPARIN SODIUM [Concomitant]
     Dosage: DOSE: 1-0-0
     Dates: end: 20070319
  21. PASPERTIN                          /00041902/ [Concomitant]
     Dosage: DOSE: 20-20-20
     Route: 048
     Dates: start: 20070319, end: 20070301
  22. EXTIN [Concomitant]
     Dosage: DOSE: 1-1-1
     Route: 048
     Dates: start: 20070319, end: 20070301
  23. ATROVENT [Concomitant]
     Route: 048
     Dates: start: 20070319, end: 20070301
  24. HEPARIN [Concomitant]
     Route: 058
     Dates: start: 20070319, end: 20070301
  25. SODIUM CHLORIDE [Concomitant]
     Dosage: DOSE: 0.9% 500 ML
     Route: 042
     Dates: start: 20070319, end: 20070301

REACTIONS (7)
  - ANURIA [None]
  - CIRCULATORY COLLAPSE [None]
  - MULTI-ORGAN FAILURE [None]
  - NEUROLOGICAL EXAMINATION ABNORMAL [None]
  - RENAL FAILURE [None]
  - RENAL FUNCTION TEST ABNORMAL [None]
  - SEPSIS [None]
